FAERS Safety Report 10203141 (Version 1)
Quarter: 2014Q2

REPORT INFORMATION
  Report Type: Spontaneous
  Country: US (occurrence: US)
  Receive Date: 20140529
  Receipt Date: 20140529
  Transmission Date: 20141212
  Serious: Yes (Hospitalization)
  Sender: FDA-Public Use
  Company Number: US-ACCORD-023898

PATIENT
  Age: 60 Year
  Sex: Female

DRUGS (1)
  1. ALLOPURINOL/ALLOPURINOL SODIUM [Suspect]
     Indication: GOUT

REACTIONS (10)
  - Hypovolaemia [Recovering/Resolving]
  - Rhabdomyolysis [Recovering/Resolving]
  - Renal failure acute [Recovering/Resolving]
  - Acute respiratory failure [Recovering/Resolving]
  - Toxic epidermal necrolysis [Recovering/Resolving]
  - Skin lesion [None]
  - Infection [None]
  - Sensory disturbance [None]
  - Haemorrhage [None]
  - Echocardiogram abnormal [None]
